FAERS Safety Report 6208495-8 (Version None)
Quarter: 2009Q2

REPORT INFORMATION
  Report Type: 
  Country: None (occurrence: None)
  Receive Date: 20090522
  Receipt Date: 20090216
  Transmission Date: 20091009
  Serious: No
  Sender: FDA-Public Use
  Company Number: 8043141

PATIENT
  Age: 42 Year
  Sex: Female
  Weight: 70 kg

DRUGS (1)
  1. CIMZIA [Suspect]
     Indication: CROHN'S DISEASE
     Dosage: 400 MG SC
     Route: 058
     Dates: start: 20090211

REACTIONS (8)
  - ABDOMINAL PAIN UPPER [None]
  - ARTHRALGIA [None]
  - CONSTIPATION [None]
  - DYSPEPSIA [None]
  - FATIGUE [None]
  - GINGIVAL PAIN [None]
  - NAUSEA [None]
  - OEDEMA PERIPHERAL [None]
